FAERS Safety Report 21116602 (Version 4)
Quarter: 2023Q4

REPORT INFORMATION
  Report Type: Spontaneous
  Country: FR (occurrence: FR)
  Receive Date: 20220722
  Receipt Date: 20231021
  Transmission Date: 20240109
  Serious: Yes (Other)
  Sender: FDA-Public Use
  Company Number: FR-AUROBINDO-AUR-APL-2022-028043

PATIENT
  Age: 76 Year
  Sex: Female
  Weight: 79.8 kg

DRUGS (11)
  1. DOXORUBICIN [Suspect]
     Active Substance: DOXORUBICIN
     Indication: Malignant peritoneal neoplasm
     Dosage: 30 MILLIGRAM/SQ. METER (ON 25/MAY/2022, MOST RECENT DOSE OF DOXORUBICIN WAS ADMINISTERED.)
     Route: 042
     Dates: start: 20211203
  2. DOXORUBICIN [Suspect]
     Active Substance: DOXORUBICIN
     Indication: Ovarian cancer recurrent
  3. CARBOPLATIN [Suspect]
     Active Substance: CARBOPLATIN
     Indication: Malignant peritoneal neoplasm
     Dosage: 5 AUC ( ON 25/MAY/2022, MOST RECENT DOSE OF CARBOPLATIN WAS ADMINISTERED)
     Route: 042
     Dates: start: 20211203
  4. CARBOPLATIN [Suspect]
     Active Substance: CARBOPLATIN
     Indication: Ovarian cancer recurrent
  5. ATEZOLIZUMAB [Suspect]
     Active Substance: ATEZOLIZUMAB
     Indication: Malignant peritoneal neoplasm
     Dosage: UNK, (ON 08/JUN/2022, MOST RECENT DOSE OF ATEZOLIZUMAB WAS ADMINISTERED.
     Route: 042
     Dates: start: 20211203
  6. ATEZOLIZUMAB [Suspect]
     Active Substance: ATEZOLIZUMAB
     Indication: Ovarian cancer recurrent
  7. ATENOLOL [Concomitant]
     Active Substance: ATENOLOL
     Indication: Hypertension
     Dosage: 50 MILLIGRAM
     Route: 065
     Dates: start: 2017
  8. ELIQUIS [Concomitant]
     Active Substance: APIXABAN
     Indication: Thrombosis
     Dosage: UNK
     Route: 065
     Dates: start: 20220609
  9. AZOPT [Concomitant]
     Active Substance: BRINZOLAMIDE
     Indication: Glaucoma
     Dosage: UNK
     Route: 065
     Dates: start: 2017, end: 20220823
  10. LATANOPROST\TIMOLOL MALEATE [Concomitant]
     Active Substance: LATANOPROST\TIMOLOL MALEATE
     Indication: Glaucoma
     Dosage: UNK
     Route: 065
     Dates: start: 2017
  11. LEVOTHYROXINE [Concomitant]
     Active Substance: LEVOTHYROXINE
     Indication: Hypothyroidism
     Dosage: UNK
     Route: 065
     Dates: start: 20220609

REACTIONS (1)
  - Adrenal insufficiency [Recovered/Resolved]

NARRATIVE: CASE EVENT DATE: 20220630
